FAERS Safety Report 8237145-4 (Version None)
Quarter: 2012Q1

REPORT INFORMATION
  Report Type: 
  Country: None (occurrence: None)
  Receive Date: 20120327
  Receipt Date: 20120321
  Transmission Date: 20120608
  Serious: No
  Sender: FDA-Public Use
  Company Number: US-PFIZER INC-2012074802

PATIENT
  Age: 60 Year
  Sex: Male

DRUGS (2)
  1. DYAZIDE [Concomitant]
     Indication: HYPERTENSION
     Dosage: UNK
     Route: 048
  2. VIAGRA [Suspect]
     Indication: ERECTILE DYSFUNCTION
     Dosage: 12.5 MG, AS NEEDED
     Route: 048

REACTIONS (1)
  - NASAL CONGESTION [None]
